FAERS Safety Report 4851184-2 (Version None)
Quarter: 2005Q4

REPORT INFORMATION
  Report Type: 
  Country: None (occurrence: None)
  Receive Date: 20051208
  Receipt Date: 20051126
  Transmission Date: 20060501
  Serious: Yes (Other)
  Sender: FDA-Public Use
  Company Number: 2005159677

PATIENT
  Age: 14 Year
  Sex: Male

DRUGS (1)
  1. BENADRYL [Suspect]
     Indication: ACCIDENTAL EXPOSURE
     Dosage: 30 TABLETS, ORAL
     Route: 048

REACTIONS (1)
  - ACCIDENTAL OVERDOSE [None]
